FAERS Safety Report 8533646-X (Version None)
Quarter: 2012Q3

REPORT INFORMATION
  Report Type: 
  Country: None (occurrence: None)
  Receive Date: 20120711
  Receipt Date: 20120201
  Transmission Date: 20120928
  Serious: Yes (Hospitalization)
  Sender: FDA-Public Use
  Company Number: 2012ST000023

PATIENT
  Sex: Female

DRUGS (1)
  1. ZEGERID [Suspect]

REACTIONS (1)
  - FOOD ALLERGY [None]
